FAERS Safety Report 8693956 (Version 2)
Quarter: 2012Q4

REPORT INFORMATION
  Report Type: 
  Country: US (occurrence: US)
  Receive Date: 20120731
  Receipt Date: 20120903
  Transmission Date: 20130627
  Serious: Yes (Hospitalization)
  Sender: FDA-Public Use
  Company Number: US-PFIZER INC-2012179219

PATIENT
  Age: 80 Year
  Sex: Female
  Weight: 52.61 kg

DRUGS (4)
  1. REVATIO [Suspect]
     Indication: PULMONARY HYPERTENSION
     Dosage: 20 mg, 3x/day
     Route: 048
     Dates: start: 2012
  2. REVATIO [Suspect]
     Indication: PULMONARY ARTERIAL HYPERTENSION
  3. PREVACID [Concomitant]
     Indication: DYSPEPSIA
     Dosage: UNK
  4. DEXILANT [Concomitant]
     Indication: DYSPEPSIA
     Dosage: UNK

REACTIONS (4)
  - Abdominal pain lower [Unknown]
  - Muscle spasms [Unknown]
  - Myalgia [Not Recovered/Not Resolved]
  - Pain in extremity [Unknown]
